FAERS Safety Report 21441259 (Version 3)
Quarter: 2022Q4

REPORT INFORMATION
  Report Type: Spontaneous
  Country: NL (occurrence: NL)
  Receive Date: 20221011
  Receipt Date: 20221026
  Transmission Date: 20230112
  Serious: Yes (Death, Life-Threatening, Other)
  Sender: FDA-Public Use
  Company Number: NL-AMERICAN REGENT INC-2022002904

PATIENT
  Age: 52 Year
  Sex: Female
  Weight: 54.5 kg

DRUGS (12)
  1. FERINJECT [Suspect]
     Active Substance: FERRIC CARBOXYMALTOSE
     Indication: Product used for unknown indication
     Dosage: 1000 MILLIGRAM, ONCE (DILUTED IN 20 ML UNSPECIFIED DILUTION)
     Dates: start: 20220822, end: 20220822
  2. FERINJECT [Suspect]
     Active Substance: FERRIC CARBOXYMALTOSE
     Dosage: 1000 MILLIGRAM, ONCE (DILUTED IN 20 ML UNSPECIFIED DILUTION)
     Dates: start: 20220816, end: 20220816
  3. ISOSORBIDE MONONITRATE [Concomitant]
     Active Substance: ISOSORBIDE MONONITRATE
     Indication: Product used for unknown indication
     Dosage: 25 MILLIGRAM, QD (FIXED DAILY STOP PRESCRIPTION)
     Route: 065
     Dates: start: 20220816
  4. SPIRONOLACTONE [Concomitant]
     Active Substance: SPIRONOLACTONE
     Indication: Product used for unknown indication
     Dosage: 25 MILLIGRAM, QD (FIXED DAILY STOP PRESCRIPTION)
     Route: 065
     Dates: start: 20220816
  5. EPLERENONE [Concomitant]
     Active Substance: EPLERENONE
     Indication: Product used for unknown indication
     Dosage: 25 MILLIGRAM, QD (FIXED DAILY STOP PRESCRIPTION)
     Route: 065
     Dates: start: 20220816
  6. METOPROLOL SUCCINATE [Concomitant]
     Active Substance: METOPROLOL SUCCINATE
     Indication: Product used for unknown indication
     Dosage: 50 MILLIGRAM, QD (FIXED DAILY)
     Route: 065
     Dates: start: 20220728
  7. SACUBITRIL\VALSARTAN [Concomitant]
     Active Substance: SACUBITRIL\VALSARTAN
     Indication: Product used for unknown indication
     Dosage: -24/26MG, FIXED DAILY 2D(1) , BID
     Route: 065
     Dates: start: 20220727
  8. TICAGRELOR [Concomitant]
     Active Substance: TICAGRELOR
     Indication: Product used for unknown indication
     Dosage: UNK
     Route: 065
     Dates: start: 20220723
  9. NITROGLYCERIN [Concomitant]
     Active Substance: NITROGLYCERIN
     Indication: Product used for unknown indication
     Dosage: 0.4 MILLIGRAM/DOSE (FL 250 DOSES), QD (FIXED DAILY AS NEEDED
     Route: 060
  10. ROSUVASTATIN [Concomitant]
     Active Substance: ROSUVASTATIN
     Indication: Product used for unknown indication
     Dosage: FIXED DAILY 10 PM QD
     Route: 065
  11. PANTOPRAZOLE [Concomitant]
     Active Substance: PANTOPRAZOLE
     Indication: Product used for unknown indication
     Dosage: FIXED DAILY 1D, QD
     Route: 065
     Dates: start: 20180912
  12. ASPIRIN [Concomitant]
     Active Substance: ASPIRIN
     Indication: Product used for unknown indication
     Dosage: FIXED DAILY 1D, QD
     Route: 065

REACTIONS (4)
  - Death [Fatal]
  - Ventricular fibrillation [Unknown]
  - Loss of consciousness [Unknown]
  - Malaise [Unknown]

NARRATIVE: CASE EVENT DATE: 20220822
